FAERS Safety Report 6555324-9 (Version None)
Quarter: 2010Q1

REPORT INFORMATION
  Report Type: 
  Country: None (occurrence: None)
  Receive Date: 20100128
  Receipt Date: 20090514
  Transmission Date: 20100710
  Serious: No
  Sender: FDA-Public Use
  Company Number: A0784326A

PATIENT
  Age: 38 Year
  Sex: Female

DRUGS (3)
  1. WELLBUTRIN [Suspect]
     Route: 048
     Dates: start: 20081101
  2. ACIPHEX [Concomitant]
  3. BIRTH CONTROL PILL [Concomitant]

REACTIONS (2)
  - THERAPEUTIC RESPONSE UNEXPECTED [None]
  - WEIGHT INCREASED [None]
